FAERS Safety Report 4317857-5 (Version None)
Quarter: 2004Q1

REPORT INFORMATION
  Report Type: 
  Country: None (occurrence: None)
  Receive Date: 20040316
  Receipt Date: 20040304
  Transmission Date: 20041129
  Serious: Yes (Death)
  Sender: FDA-Public Use
  Company Number: JP-BRISTOL-MYERS SQUIBB COMPANY-12524682

PATIENT
  Age: 47 Year
  Sex: Female

DRUGS (1)
  1. TAXOL [Suspect]
     Indication: BREAST CANCER METASTATIC
     Dosage: THERAPY DATES: 30-JUL-2001 TO UNKNOWN
     Route: 042
     Dates: start: 20010618, end: 20010730

REACTIONS (1)
  - HEPATIC CIRRHOSIS [None]
